FAERS Safety Report 6827391-6 (Version None)
Quarter: 2010Q3

REPORT INFORMATION
  Report Type: 
  Country: None (occurrence: None)
  Receive Date: 20100709
  Receipt Date: 20070116
  Transmission Date: 20110219
  Serious: No
  Sender: FDA-Public Use
  Company Number: US-PFIZER INC-2007005347

PATIENT
  Sex: Male
  Weight: 96.16 kg

DRUGS (8)
  1. CHANTIX [Suspect]
     Indication: SMOKING CESSATION THERAPY
     Route: 048
     Dates: start: 20070101
  2. GLIPIZIDE [Concomitant]
     Route: 048
  3. ACETAZOLAMIDE [Concomitant]
     Route: 048
  4. CAPTOPRIL [Concomitant]
     Route: 048
  5. LIPITOR [Concomitant]
     Route: 048
  6. BUMETANIDE [Concomitant]
     Route: 048
  7. NADOLOL [Concomitant]
     Route: 048
  8. INSULIN [Concomitant]
     Indication: DIABETES MELLITUS

REACTIONS (2)
  - ABNORMAL DREAMS [None]
  - INSOMNIA [None]
